FAERS Safety Report 4473854-0 (Version None)
Quarter: 2004Q4

REPORT INFORMATION
  Report Type: 
  Country: None (occurrence: None)
  Receive Date: 20041008
  Receipt Date: 20041008
  Transmission Date: 20050328
  Serious: No
  Sender: FDA-Public Use
  Company Number: None

PATIENT
  Sex: Male
  Weight: 61.2356 kg

DRUGS (3)
  1. NEXIUM [Suspect]
     Indication: BARRETT'S OESOPHAGUS
     Dosage: ONCE DAILY ORAL
     Route: 048
     Dates: start: 20030420, end: 20041007
  2. NEXIUM [Suspect]
     Indication: REFLUX OESOPHAGITIS
     Dosage: ONCE DAILY ORAL
     Route: 048
     Dates: start: 20030420, end: 20041007
  3. ASPIRIN [Concomitant]

REACTIONS (5)
  - DISEASE RECURRENCE [None]
  - DRUG EFFECT DECREASED [None]
  - GASTROOESOPHAGEAL REFLUX DISEASE [None]
  - OESOPHAGITIS [None]
  - PHARMACEUTICAL PRODUCT COMPLAINT [None]
